FAERS Safety Report 23983903 (Version 1)
Quarter: 2024Q2

REPORT INFORMATION
  Report Type: Spontaneous
  Country: US (occurrence: US)
  Receive Date: 20240618
  Receipt Date: 20240618
  Transmission Date: 20240716
  Serious: No
  Sender: FDA-Public Use
  Company Number: US-SA-2024SA164609

PATIENT
  Age: 46 Year
  Sex: Female
  Weight: 170 kg

DRUGS (1)
  1. KEVZARA [Suspect]
     Active Substance: SARILUMAB
     Indication: Rheumatoid arthritis
     Dosage: 200 MG, QOW
     Route: 058
     Dates: start: 20240503

REACTIONS (5)
  - Urticaria [Recovered/Resolved]
  - Nasal congestion [Recovered/Resolved]
  - Wheezing [Recovered/Resolved]
  - Pruritus [Recovered/Resolved]
  - Injection site reaction [Recovered/Resolved]

NARRATIVE: CASE EVENT DATE: 20240601
